FAERS Safety Report 21869839 (Version 1)
Quarter: 2023Q1

REPORT INFORMATION
  Report Type: Spontaneous
  Country: IT (occurrence: IT)
  Receive Date: 20230117
  Receipt Date: 20230117
  Transmission Date: 20230417
  Serious: Yes (Death, Hospitalization)
  Sender: FDA-Public Use
  Company Number: IT-STRIDES ARCOLAB LIMITED-2023SP000487

PATIENT
  Age: 30 Year
  Sex: Male

DRUGS (8)
  1. DEXAMETHASONE [Suspect]
     Active Substance: DEXAMETHASONE
     Indication: Hepatosplenic T-cell lymphoma
     Dosage: UNK, (AS A PART OF HYPER-CVAD CHEMOTHERAPY)
     Route: 065
  2. PREDNISOLONE [Suspect]
     Active Substance: PREDNISOLONE
     Indication: Hepatosplenic T-cell lymphoma
     Dosage: UNK, CYCLICAL (AS A PART OF CHOP CHEMOTHERAPY REGIMEN: 6 CYCLES)
     Route: 065
  3. CYCLOPHOSPHAMIDE [Suspect]
     Active Substance: CYCLOPHOSPHAMIDE
     Indication: Hepatosplenic T-cell lymphoma
     Dosage: UNK, CYCLICAL (AS A PART OF CHOP CHEMOTHERAPY REGIMEN: 6 CYCLES)
     Route: 065
  4. CYCLOPHOSPHAMIDE [Suspect]
     Active Substance: CYCLOPHOSPHAMIDE
     Dosage: UNK, (AS A PART OF HYPER-CVAD CHEMOTHERAPY)
     Route: 065
  5. DOXORUBICIN [Suspect]
     Active Substance: DOXORUBICIN
     Indication: Hepatosplenic T-cell lymphoma
     Dosage: UNK, CYCLICAL (AS A PART OF CHOP CHEMOTHERAPY REGIMEN: 6 CYCLES)
     Route: 065
  6. DOXORUBICIN [Suspect]
     Active Substance: DOXORUBICIN
     Dosage: UNK, (AS A PART OF HYPER-CVAD CHEMOTHERAPY)
     Route: 065
  7. VINCRISTINE [Suspect]
     Active Substance: VINCRISTINE
     Indication: Hepatosplenic T-cell lymphoma
     Dosage: UNK, CYCLICAL (AS A PART OF CHOP CHEMOTHERAPY REGIMEN: 6 CYCLES)
     Route: 065
  8. VINCRISTINE [Suspect]
     Active Substance: VINCRISTINE
     Dosage: UNK, (AS A PART OF HYPER-CVAD CHEMOTHERAPY)
     Route: 065

REACTIONS (1)
  - Drug ineffective [Fatal]
